FAERS Safety Report 8061562-9 (Version None)
Quarter: 2012Q1

REPORT INFORMATION
  Report Type: 
  Country: None (occurrence: None)
  Receive Date: 20120121
  Receipt Date: 20111208
  Transmission Date: 20120608
  Serious: Yes (Other)
  Sender: FDA-Public Use
  Company Number: US-AMGEN-USASP2011036693

PATIENT
  Age: 51 Year
  Sex: Male

DRUGS (6)
  1. PEGINTRON                          /01543001/ [Concomitant]
     Indication: ANAEMIA
     Dosage: 120 MUG, QWK
     Route: 058
  2. PROCRIT [Suspect]
     Dosage: 20000 IU, UNK
     Route: 058
     Dates: start: 20100928, end: 20110223
  3. PROCRIT [Suspect]
     Indication: HEPATITIS C
     Dosage: 40000 IU, 2 TIMES/WK
     Route: 058
     Dates: start: 20100128, end: 20100924
  4. RIBASPHERE [Concomitant]
     Indication: HEPATITIS C
     Dosage: 1000 MG, QD
  5. PEGASYS CONVEN [Concomitant]
     Indication: HEPATITIS C
     Dosage: 180 MUG, QWK
     Route: 058
  6. PROCRIT [Suspect]
     Dosage: 20000 IU, 2 TIMES/WK
     Dates: end: 20110223

REACTIONS (10)
  - PAIN [None]
  - PAIN IN EXTREMITY [None]
  - INJURY [None]
  - NERVOUS SYSTEM DISORDER [None]
  - OEDEMA PERIPHERAL [None]
  - INJECTION SITE PAIN [None]
  - ANAEMIA [None]
  - STRESS [None]
  - ACTIVITIES OF DAILY LIVING IMPAIRED [None]
  - DISCOMFORT [None]
